FAERS Safety Report 9367119 (Version 1)
Quarter: 2013Q2

REPORT INFORMATION
  Report Type: Report from Study
  Country: US (occurrence: US)
  Receive Date: 20130625
  Receipt Date: 20130625
  Transmission Date: 20140414
  Serious: Yes (Other)
  Sender: FDA-Public Use
  Company Number: US-JNJFOC-20130616832

PATIENT
  Age: 34 Year
  Sex: Female

DRUGS (8)
  1. SIMPONI [Suspect]
     Indication: SJOGREN^S SYNDROME
     Route: 058
     Dates: end: 20120501
  2. SIMPONI [Suspect]
     Indication: SJOGREN^S SYNDROME
     Route: 058
     Dates: end: 201212
  3. SIMPONI [Suspect]
     Indication: RHEUMATOID ARTHRITIS
     Route: 058
     Dates: end: 201212
  4. SIMPONI [Suspect]
     Indication: RHEUMATOID ARTHRITIS
     Route: 058
     Dates: end: 20120501
  5. PLAQUENIL [Concomitant]
     Indication: RHEUMATOID ARTHRITIS
     Dates: start: 2004
  6. PLAQUENIL [Concomitant]
     Indication: SJOGREN^S SYNDROME
     Dates: start: 2004
  7. PRENATAL VITAMINS [Concomitant]
  8. PROZAC [Concomitant]

REACTIONS (2)
  - Pre-eclampsia [Unknown]
  - Exposure during pregnancy [Unknown]
